FAERS Safety Report 10056410 (Version 2)
Quarter: 2014Q2

REPORT INFORMATION
  Report Type: Report from Study
  Country: BR (occurrence: BR)
  Receive Date: 20140403
  Receipt Date: 20140403
  Transmission Date: 20141212
  Serious: Yes (Other)
  Sender: FDA-Public Use
  Company Number: BR-BAYER-2014-045381

PATIENT
  Sex: Male

DRUGS (1)
  1. BETAFERON [Suspect]
     Indication: MULTIPLE SCLEROSIS
     Dosage: 1 ML, QOD
     Route: 058
     Dates: end: 201308

REACTIONS (4)
  - Multiple sclerosis relapse [Recovered/Resolved]
  - Neck pain [Recovered/Resolved]
  - Discomfort [Recovered/Resolved]
  - Formication [Recovered/Resolved]
